FAERS Safety Report 6664305-6 (Version None)
Quarter: 2010Q2

REPORT INFORMATION
  Report Type: 
  Country: None (occurrence: None)
  Receive Date: 20100401
  Receipt Date: 20100320
  Transmission Date: 20101027
  Serious: Yes (Hospitalization)
  Sender: FDA-Public Use
  Company Number: US-ELI_LILLY_AND_COMPANY-US201003006403

PATIENT
  Age: 67 Year
  Sex: Female

DRUGS (5)
  1. CYMBALTA [Suspect]
     Indication: DEPRESSION
     Dosage: 90 MG, UNK
  2. CYMBALTA [Suspect]
     Dosage: 30 MG, UNK
  3. ARICEPT [Concomitant]
  4. ATIVAN [Concomitant]
  5. TRAZODONE [Concomitant]

REACTIONS (2)
  - HOSPITALISATION [None]
  - HYPERHIDROSIS [None]
